FAERS Safety Report 24631402 (Version 1)
Quarter: 2024Q4

REPORT INFORMATION
  Report Type: Spontaneous
  Country: GB (occurrence: GB)
  Receive Date: 20241118
  Receipt Date: 20241118
  Transmission Date: 20250114
  Serious: Yes (Other)
  Sender: MYLAN
  Company Number: GB-MHRA-TPP26021888C7949041YC1730819352321

PATIENT
  Age: 47 Year
  Sex: Male
  Weight: 90 kg

DRUGS (2)
  1. FEBUXOSTAT [Suspect]
     Active Substance: FEBUXOSTAT
     Indication: Prophylaxis
     Dosage: 80 MILLIGRAM, QD
     Route: 065
     Dates: start: 20240415
  2. CLOTRIMAZOLE [Concomitant]
     Active Substance: CLOTRIMAZOLE
     Indication: Ill-defined disorder
     Dosage: 1 DOSAGE FORM (APPLY TO THE AFFECTED AREAS TWO OR THREE TIMES)
     Route: 061
     Dates: start: 20240906, end: 20240913

REACTIONS (1)
  - Visual impairment [Recovered/Resolved]
